FAERS Safety Report 11541909 (Version 1)
Quarter: 2015Q3

REPORT INFORMATION
  Report Type: Spontaneous
  Country: US (occurrence: US)
  Receive Date: 20150903
  Receipt Date: 20150903
  Transmission Date: 20151125
  Serious: No
  Sender: FDA-Public Use
  Company Number: US-ELI_LILLY_AND_COMPANY-US201104005861

PATIENT
  Age: 45 Year
  Sex: Male

DRUGS (3)
  1. LANTUS SOLOSTAR [Concomitant]
     Active Substance: INSULIN GLARGINE
     Indication: TYPE 2 DIABETES MELLITUS
     Dosage: 8 U, EACH EVENING
     Route: 058
     Dates: start: 201012
  2. NOVOLOG [Concomitant]
     Active Substance: INSULIN ASPART
  3. HUMALOG [Suspect]
     Active Substance: INSULIN LISPRO
     Indication: TYPE 2 DIABETES MELLITUS
     Dosage: 5 U, TID
     Dates: start: 201012, end: 20110817

REACTIONS (11)
  - Abdominal distension [Unknown]
  - Throat irritation [Unknown]
  - Dyspepsia [Unknown]
  - Limb injury [Recovering/Resolving]
  - Drug dose omission [Unknown]
  - Abnormal faeces [Unknown]
  - Faeces pale [Unknown]
  - Diarrhoea [Recovering/Resolving]
  - Constipation [Unknown]
  - Nausea [Unknown]
  - Flatulence [Unknown]

NARRATIVE: CASE EVENT DATE: 201101
